FAERS Safety Report 8494821-6 (Version None)
Quarter: 2012Q2

REPORT INFORMATION
  Report Type: 
  Country: None (occurrence: None)
  Receive Date: 20120405
  Receipt Date: 20100510
  Transmission Date: 20120825
  Serious: Yes (Other)
  Sender: FDA-Public Use
  Company Number: PHHY2010US24240

PATIENT
  Age: 72 Year
  Sex: Female

DRUGS (11)
  1. DIAZEPAM [Concomitant]
  2. ZETIA [Concomitant]
  3. TRIAM (TRIAMCINOLONE ACETONIDE) [Concomitant]
  4. FISH OIL (FISH OIL) [Concomitant]
  5. CYMBALTA [Concomitant]
  6. CALCIUM CARBONATE [Concomitant]
  7. VYTORIN [Concomitant]
  8. VITAMIN D [Concomitant]
  9. SIMVASTATIN [Concomitant]
  10. HYDROCHLOROTHIAZIDE [Concomitant]
  11. RECLAST [Suspect]
     Indication: OSTEOPOROSIS
     Dosage: YEARLY, INTRAVENOUS
     Route: 042
     Dates: start: 20100218

REACTIONS (7)
  - ARTHRALGIA [None]
  - BLOOD UREA INCREASED [None]
  - MYALGIA [None]
  - MALAISE [None]
  - BACK PAIN [None]
  - PAIN IN EXTREMITY [None]
  - MUSCULOSKELETAL PAIN [None]
